FAERS Safety Report 7802671-6 (Version None)
Quarter: 2011Q4

REPORT INFORMATION
  Report Type: 
  Country: None (occurrence: None)
  Receive Date: 20111007
  Receipt Date: 20110926
  Transmission Date: 20120403
  Serious: Yes (Other)
  Sender: FDA-Public Use
  Company Number: PHHY2011US85945

PATIENT
  Age: 59 Year
  Sex: Female

DRUGS (11)
  1. CYCLOSPORINE [Suspect]
     Indication: IMMUNOSUPPRESSION
     Dosage: UNK UKN, UNK
  2. CYCLOSPORINE [Suspect]
     Indication: RENAL TRANSPLANT
  3. PREDNISONE [Concomitant]
     Dosage: 5 MG, QD
  4. MYCOPHENOLATE MOFETIL [Concomitant]
     Dosage: 1000 MG, BID
  5. TACROLIMUS [Concomitant]
     Dosage: UNK UKN, UNK
  6. PREDNISONE [Concomitant]
     Dosage: 20 MG, QD
  7. SIROLIMUS [Concomitant]
     Dosage: UNK UKN, UNK
  8. MYCOPHENOLATE MOFETIL [Concomitant]
     Dosage: 250 MG, BID
  9. BASILIXIMAB [Concomitant]
     Dosage: 20 MG, UNK
     Route: 017
  10. METHYLPREDNISOLONE [Concomitant]
     Dosage: 500 MG, UNK
     Route: 042
  11. PREDNISONE [Concomitant]
     Dosage: 4 MG, QD

REACTIONS (5)
  - GOUT [None]
  - SKIN LESION [None]
  - OEDEMA PERIPHERAL [None]
  - INFECTION [None]
  - DEPRESSION [None]
